FAERS Safety Report 9425309 (Version 1)
Quarter: 2013Q3

REPORT INFORMATION
  Report Type: Spontaneous
  Country: PL (occurrence: PL)
  Receive Date: 20130729
  Receipt Date: 20130729
  Transmission Date: 20140515
  Serious: Yes (Life-Threatening)
  Sender: FDA-Public Use
  Company Number: PHHY2013PL079711

PATIENT
  Age: 62 Year
  Sex: Female
  Weight: 51 kg

DRUGS (4)
  1. CARBOPLATIN [Suspect]
     Indication: BRONCHIAL NEOPLASM
     Dosage: 498.91 MG, DAILY
     Route: 042
     Dates: start: 20121231, end: 20121231
  2. CARBOPLATIN [Suspect]
     Indication: LUNG NEOPLASM MALIGNANT
  3. VINORELBINE [Suspect]
     Indication: BRONCHIAL NEOPLASM
     Dosage: 44.8 MG, DAILY
     Route: 042
     Dates: start: 20121231, end: 20121231
  4. VINORELBINE [Suspect]
     Indication: LUNG NEOPLASM MALIGNANT

REACTIONS (2)
  - Granulocytopenia [Unknown]
  - Leukopenia [Unknown]
